FAERS Safety Report 6878674-5 (Version None)
Quarter: 2010Q3

REPORT INFORMATION
  Report Type: 
  Country: None (occurrence: None)
  Receive Date: 20100728
  Receipt Date: 20100722
  Transmission Date: 20110219
  Serious: Yes (Hospitalization)
  Sender: FDA-Public Use
  Company Number: B0646910A

PATIENT
  Sex: Female

DRUGS (5)
  1. DILATREND [Suspect]
     Indication: PRODUCT USED FOR UNKNOWN INDICATION
     Dosage: 6.25MG PER DAY
     Route: 048
     Dates: start: 20100222, end: 20100302
  2. NORVASC [Concomitant]
  3. ASPIRIN [Concomitant]
  4. VALSARTAN AND HYDROCHLOROTHIAZIDE [Concomitant]
  5. MEPRAL [Concomitant]

REACTIONS (1)
  - MONOPLEGIA [None]
